FAERS Safety Report 4618661-0 (Version None)
Quarter: 2005Q2

REPORT INFORMATION
  Report Type: 
  Country: None (occurrence: None)
  Receive Date: 20050311
  Receipt Date: 20041110
  Transmission Date: 20051028
  Serious: No
  Sender: FDA-Public Use
  Company Number: 2004-BP-09039BP

PATIENT
  Age: 76 Year
  Sex: Female

DRUGS (11)
  1. SPIRIVA [Suspect]
     Indication: CHRONIC OBSTRUCTIVE PULMONARY DISEASE
     Dosage: 18 MCG (18 MCG, QD), IH;  18 MCG (18 MCG, QD), IH
     Route: 055
     Dates: start: 20040901, end: 20040905
  2. SPIRIVA [Suspect]
     Indication: CHRONIC OBSTRUCTIVE PULMONARY DISEASE
     Dosage: 18 MCG (18 MCG, QD), IH;  18 MCG (18 MCG, QD), IH
     Route: 055
     Dates: start: 20040920, end: 20040926
  3. ACETYLSALICYLIC ACID SRT [Concomitant]
  4. ADVAIR DISKUS 100/50 [Concomitant]
  5. ALLEGRA [Concomitant]
  6. FOSAMAX [Concomitant]
  7. CALCIUM GLUCONATE [Concomitant]
  8. FISH OILS (FISH OIL) [Concomitant]
  9. ESTRADIOL [Concomitant]
  10. ASPIRIN [Concomitant]
  11. OMEGA TABS [Concomitant]

REACTIONS (6)
  - DYSPNOEA EXACERBATED [None]
  - EYE HAEMORRHAGE [None]
  - EYE SWELLING [None]
  - RASH [None]
  - URINARY TRACT INFECTION [None]
  - URTICARIA [None]
